FAERS Safety Report 16973171 (Version 9)
Quarter: 2021Q2

REPORT INFORMATION
  Report Type: Report from Study
  Country: JP (occurrence: JP)
  Receive Date: 20191030
  Receipt Date: 20210615
  Transmission Date: 20210716
  Serious: Yes (Death, Life-Threatening, Hospitalization, Other)
  Sender: FDA-Public Use
  Company Number: JP-ASTELLAS-2019JP019925

PATIENT
  Age: 11 Year
  Sex: Female
  Weight: 28 kg

DRUGS (10)
  1. FAMOTIDINE. [Concomitant]
     Active Substance: FAMOTIDINE
     Indication: PROPHYLAXIS
     Route: 048
     Dates: start: 20180525
  2. ASP2215 [Suspect]
     Active Substance: GILTERITINIB
     Indication: ACUTE MYELOID LEUKAEMIA RECURRENT
     Route: 048
     Dates: start: 20190902, end: 20191022
  3. FLUCONAZOLE. [Concomitant]
     Active Substance: FLUCONAZOLE
     Indication: INFECTION PROPHYLAXIS
     Route: 048
     Dates: start: 20190610
  4. FEBURIC [Concomitant]
     Active Substance: FEBUXOSTAT
     Indication: TUMOUR LYSIS SYNDROME
     Route: 048
     Dates: start: 20191010, end: 20191027
  5. ASP2215 [Suspect]
     Active Substance: GILTERITINIB
     Route: 048
     Dates: start: 20191202, end: 20200104
  6. HEPARIN [Concomitant]
     Active Substance: HEPARIN SODIUM
     Indication: DISSEMINATED INTRAVASCULAR COAGULATION
     Dosage: UNK UNK, UNKNOWN FREQ.
     Route: 065
     Dates: start: 20191028
  7. ASP2215 [Suspect]
     Active Substance: GILTERITINIB
     Route: 048
     Dates: start: 20191023, end: 20191201
  8. CYLOCIDE [Concomitant]
     Active Substance: CYTARABINE
     Indication: ACUTE MYELOID LEUKAEMIA
     Dosage: 80 MG/DAY, UNKNOWN FREQ.
     Route: 065
  9. DESMOPRESSIN ACETATE. [Concomitant]
     Active Substance: DESMOPRESSIN ACETATE
     Indication: DIABETES INSIPIDUS
     Route: 048
     Dates: start: 20190727, end: 20191027
  10. PREDNISOLONE. [Concomitant]
     Active Substance: PREDNISOLONE
     Indication: JUVENILE IDIOPATHIC ARTHRITIS
     Route: 048
     Dates: start: 20190804

REACTIONS (6)
  - Tumour lysis syndrome [Recovered/Resolved]
  - Bacteraemia [Recovered/Resolved]
  - Disseminated intravascular coagulation [Recovered/Resolved]
  - Hepatic function abnormal [Unknown]
  - Product administered to patient of inappropriate age [Unknown]
  - Off label use [Unknown]

NARRATIVE: CASE EVENT DATE: 20190902
